FAERS Safety Report 8100794-8 (Version None)
Quarter: 2012Q1

REPORT INFORMATION
  Report Type: 
  Country: None (occurrence: None)
  Receive Date: 20120129
  Receipt Date: 20111011
  Transmission Date: 20120608
  Serious: No
  Sender: FDA-Public Use
  Company Number: US-ABBOTT-11P-163-0864314-00

PATIENT
  Sex: Female
  Weight: 55.842 kg

DRUGS (3)
  1. HUMIRA [Suspect]
     Indication: PSORIATIC ARTHROPATHY
     Dates: start: 20110601, end: 20111001
  2. HUMIRA [Suspect]
     Dates: start: 20111001
  3. TACLONEX [Concomitant]
     Indication: PSORIASIS

REACTIONS (1)
  - RASH PAPULAR [None]
